FAERS Safety Report 4415124-2 (Version None)
Quarter: 2004Q3

REPORT INFORMATION
  Report Type: 
  Country: None (occurrence: None)
  Receive Date: 20040729
  Receipt Date: 20040716
  Transmission Date: 20050211
  Serious: Yes (Hospitalization)
  Sender: FDA-Public Use
  Company Number: 8006404

PATIENT
  Age: 62 Year
  Sex: Male
  Weight: 54.54 kg

DRUGS (4)
  1. KEPPRA [Suspect]
     Dosage: 1500 MG 2/D PO
     Route: 048
     Dates: start: 20040204, end: 20040519
  2. DEPAKOTE [Concomitant]
  3. CELEXA [Concomitant]
  4. STATIN [Concomitant]

REACTIONS (14)
  - CONFUSIONAL STATE [None]
  - FALL [None]
  - FOLATE DEFICIENCY [None]
  - IRON DEFICIENCY [None]
  - LETHARGY [None]
  - METASTASES TO BONE MARROW [None]
  - METASTATIC NEOPLASM [None]
  - MYELODYSPLASTIC SYNDROME [None]
  - NEUTROPHIL PELGER-HUET ANOMALY PRESENT [None]
  - NORMOCHROMIC NORMOCYTIC ANAEMIA [None]
  - RED BLOOD CELL NUCLEATED MORPHOLOGY PRESENT [None]
  - RED CELL DISTRIBUTION WIDTH INCREASED [None]
  - SOMNOLENCE [None]
  - VITAMIN B12 DEFICIENCY [None]
